FAERS Safety Report 17909372 (Version 1)
Quarter: 2020Q2

REPORT INFORMATION
  Report Type: Spontaneous
  Country: ES (occurrence: ES)
  Receive Date: 20200618
  Receipt Date: 20200618
  Transmission Date: 20200714
  Serious: Yes (Other)
  Sender: FDA-Public Use
  Company Number: ES-BEH-2020118538

PATIENT
  Age: 79 Year
  Sex: Male

DRUGS (3)
  1. PROTHROMBIN COMPLEX CONCENTRATE NOS [Suspect]
     Active Substance: COAGULATION FACTOR IX HUMAN\COAGULATION FACTOR VII HUMAN\COAGULATION FACTOR X HUMAN\PROTHROMBIN
     Indication: PROCOAGULANT THERAPY
     Route: 065
  2. ACENOCUMAROL [Concomitant]
     Active Substance: ACENOCOUMAROL
     Route: 065
  3. VITAMIN K [Suspect]
     Active Substance: PHYTONADIONE
     Route: 065

REACTIONS (2)
  - Ischaemic cerebral infarction [Unknown]
  - Atrial thrombosis [Recovered/Resolved]
